FAERS Safety Report 7449865-X (Version None)
Quarter: 2011Q2

REPORT INFORMATION
  Report Type: 
  Country: None (occurrence: None)
  Receive Date: 20110428
  Receipt Date: 20110428
  Transmission Date: 20111010
  Serious: No
  Sender: FDA-Public Use
  Company Number: None

PATIENT
  Sex: Female

DRUGS (1)
  1. PREMARIN [Suspect]
     Indication: HORMONE REPLACEMENT THERAPY
     Dosage: 0.45MG ONCE DAILY ORAL
     Route: 048
     Dates: start: 20110410, end: 20110424

REACTIONS (1)
  - PRURITUS GENERALISED [None]
